FAERS Safety Report 8545308-3 (Version None)
Quarter: 2012Q3

REPORT INFORMATION
  Report Type: 
  Country: None (occurrence: None)
  Receive Date: 20120727
  Receipt Date: 20120716
  Transmission Date: 20120928
  Serious: Yes (Other)
  Sender: FDA-Public Use
  Company Number: NO-TEVA-348875ISR

PATIENT
  Age: 24 Year
  Sex: Male

DRUGS (11)
  1. CYCLOPHOSPHAMIDE [Suspect]
     Dosage: 650 (STANDARD) OR 1250 (ESCALATED) MG/M2 D1 Q22D
     Route: 042
  2. COTRIM [Concomitant]
     Indication: ANTIFUNGAL PROPHYLAXIS
     Route: 065
  3. CYCLOPHOSPHAMIDE [Suspect]
     Indication: HODGKIN'S DISEASE
     Dosage: 650 (STANDARD) OR 1250 (ESCALATED) MG/M2 D1 Q22D
     Route: 042
  4. ETOPOSIDE [Suspect]
     Dosage: 100 (STANDARD) OR 200 (ESCALATED) MG/M2 D1-3 Q22D
     Route: 042
  5. VINCRISTINE [Suspect]
     Indication: HODGKIN'S DISEASE
     Dosage: D8 Q22D
     Route: 042
  6. ETOPOSIDE [Suspect]
     Indication: HODGKIN'S DISEASE
     Dosage: 100 (STANDARD) OR 200 (ESCALATED) MG/M2 D1-3 Q22D
     Route: 042
  7. BLEOMYCIN SULFATE [Suspect]
     Indication: HODGKIN'S DISEASE
     Dosage: D8 Q22D
     Route: 042
  8. DOXORUBICIN HYDROCHLORIDE [Suspect]
     Indication: HODGKIN'S DISEASE
     Dosage: 25 (STANDARD) OR 35 (ESCALATED) MG/M2 D1 Q22D
     Route: 042
  9. DOXORUBICIN HYDROCHLORIDE [Suspect]
     Dosage: 25 (STANDARD) OR 35 (ESCALATED) MG/M2 D1 Q22D
     Route: 042
  10. PROCARBAZINE HYDROCHLORIDE [Suspect]
     Indication: HODGKIN'S DISEASE
     Dosage: DAY 1-7 EVERY 22 DAYS
     Route: 048
  11. PREDNISOLONE [Suspect]
     Indication: HODGKIN'S DISEASE
     Dosage: D1-14 Q22D
     Route: 048

REACTIONS (1)
  - OSTEONECROSIS [None]
